FAERS Safety Report 19907435 (Version 2)
Quarter: 2021Q4

REPORT INFORMATION
  Report Type: Report from Study
  Country: ES (occurrence: ES)
  Receive Date: 20210930
  Receipt Date: 20211007
  Transmission Date: 20220303
  Serious: Yes (Hospitalization, Other)
  Sender: FDA-Public Use
  Company Number: ES-BRISTOL-MYERS SQUIBB COMPANY-BMS-2021-097004

PATIENT
  Age: 67 Year
  Sex: Male
  Weight: 109 kg

DRUGS (7)
  1. LINRODOSTAT MESYLATE [Suspect]
     Active Substance: LINRODOSTAT MESYLATE
     Indication: Bladder cancer
     Dosage: 1 TAB
     Route: 065
     Dates: start: 20210825, end: 20210914
  2. NIVOLUMAB [Suspect]
     Active Substance: NIVOLUMAB
     Indication: Bladder cancer
     Dosage: 360 MILLIGRAM
     Route: 042
     Dates: start: 20210825, end: 20210914
  3. GEMCITABINE HYDROCHLORIDE [Suspect]
     Active Substance: GEMCITABINE HYDROCHLORIDE
     Indication: Bladder cancer
     Dosage: 2260 MILLIGRAM
     Route: 065
     Dates: start: 20210825, end: 20210914
  4. CISPLATIN [Suspect]
     Active Substance: CISPLATIN
     Indication: Bladder cancer
     Dosage: 158.2 MILLIGRAM
     Route: 065
     Dates: start: 20210914, end: 20210914
  5. LOSARTAN [Concomitant]
     Active Substance: LOSARTAN
     Indication: Product used for unknown indication
     Dosage: 100 MILLIGRAM
     Route: 048
     Dates: start: 20200801
  6. CAPTOPRIL [Concomitant]
     Active Substance: CAPTOPRIL
     Indication: Product used for unknown indication
     Dosage: 25 MILLIGRAM
     Route: 048
     Dates: start: 20200801
  7. DIAZEPAM [Concomitant]
     Active Substance: DIAZEPAM
     Indication: Hypertensive crisis
     Dosage: 10 MILLIGRAM
     Route: 048
     Dates: start: 20210914, end: 20210914

REACTIONS (1)
  - Respiratory failure [Recovering/Resolving]

NARRATIVE: CASE EVENT DATE: 20210917
